FAERS Safety Report 14202726 (Version 3)
Quarter: 2018Q1

REPORT INFORMATION
  Report Type: Spontaneous
  Country: GB (occurrence: GB)
  Receive Date: 20171118
  Receipt Date: 20180309
  Transmission Date: 20180508
  Serious: Yes (Other)
  Sender: FDA-Public Use
  Company Number: GB-BAXTER-2017BAX037996

PATIENT
  Age: 43 Year
  Sex: Male

DRUGS (10)
  1. CISPLATIN. [Suspect]
     Active Substance: CISPLATIN
     Indication: SEMINOMA
  2. ETOPOSIDE. [Suspect]
     Active Substance: ETOPOSIDE
     Indication: SEMINOMA
  3. LIPEGFILGRASTIM [Suspect]
     Active Substance: LIPEGFILGRASTIM
     Indication: PRODUCT USED FOR UNKNOWN INDICATION
     Dosage: FOUR CYCLES PLANNED OF 21 DAYS EACH; ADMINISTERED ON DAY 6 OF EACH CYCLE (SINGLE DOSE)
     Route: 065
     Dates: start: 20170820
  4. DEXAMETHASONE. [Suspect]
     Active Substance: DEXAMETHASONE
     Dosage: FOUR CYCLES PLANNED OF 21 DAYS EACH; ADMINISTERED ON DAYS 6-8 OF EACH CYCLE
     Route: 065
     Dates: start: 201708
  5. CISPLATIN. [Suspect]
     Active Substance: CISPLATIN
     Indication: TESTICULAR GERM CELL CANCER METASTATIC
     Dosage: FOUR CYCLES PLANNED OF 21 DAYS EACH; ADMINISTERED ON DAYS 1-5 OF EACH CYCLE
     Route: 065
     Dates: start: 20170815
  6. ZAPONEX [Suspect]
     Active Substance: CLOZAPINE
     Indication: SCHIZOPHRENIA
     Route: 048
     Dates: start: 20151103
  7. ONDANSETRON 2MG/ML SOLUTION FOR INJECTION [Suspect]
     Active Substance: ONDANSETRON
     Indication: NAUSEA
     Dosage: FOUR CYCLES PLANNED OF 21 DAYS EACH; ADMINISTERED ON DAYS 1-5 OF EACH CYCLE
     Route: 065
     Dates: start: 20170815
  8. EMEND [Suspect]
     Active Substance: APREPITANT
     Indication: NAUSEA
     Dosage: FOUR CYCLES PLANNED OF 21 DAYS EACH; ADMINISTERED ON DAYS 1-3 OF EACH CYCLE
     Route: 065
     Dates: start: 20170815
  9. ETOPOSIDE. [Suspect]
     Active Substance: ETOPOSIDE
     Indication: TESTICULAR GERM CELL CANCER METASTATIC
     Dosage: FOUR CYCLES PLANNED OF 21 DAYS EACH; ADMINISTERED ON DAYS 1-5 OF EACH CYCLE
     Route: 065
     Dates: start: 20170815
  10. DEXAMETHASONE. [Suspect]
     Active Substance: DEXAMETHASONE
     Indication: NAUSEA
     Dosage: FOUR CYCLES PLANNED OF 21 DAYS EACH; ADMINISTERED ON DAYS 1-5 OF EACH CYCLE
     Route: 065
     Dates: start: 20170815

REACTIONS (8)
  - Thrombocytopenia [Recovered/Resolved]
  - Platelet count increased [Recovered/Resolved]
  - Contraindicated product administered [Not Recovered/Not Resolved]
  - Leukopenia [Recovered/Resolved]
  - Neutropenia [Recovered/Resolved]
  - Leukopenia [Recovered/Resolved]
  - Neutrophil count decreased [Recovered/Resolved]
  - Platelet count decreased [Recovered/Resolved]

NARRATIVE: CASE EVENT DATE: 20170815
